FAERS Safety Report 4373581-4 (Version None)
Quarter: 2004Q1

REPORT INFORMATION
  Report Type: 
  Country: None (occurrence: None)
  Receive Date: 20040305
  Receipt Date: 20031124
  Transmission Date: 20041129
  Serious: Yes (Other)
  Sender: FDA-Public Use
  Company Number: 2003UW13753

PATIENT
  Age: 58 Year
  Sex: Female
  Weight: 125.6464 kg

DRUGS (4)
  1. CRESTOR [Suspect]
  2. TOPROL-XL [Concomitant]
  3. NORVASC [Concomitant]
  4. ASPIRIN [Concomitant]

REACTIONS (2)
  - OEDEMA PERIPHERAL [None]
  - URTICARIA [None]
